FAERS Safety Report 9991591 (Version 1)
Quarter: 2014Q1

REPORT INFORMATION
  Report Type: Spontaneous
  Country: JP (occurrence: JP)
  Receive Date: 20140310
  Receipt Date: 20140310
  Transmission Date: 20141002
  Serious: Yes (Death)
  Sender: FDA-Public Use
  Company Number: JP-MYLANLABS-2014S1004751

PATIENT
  Age: 74 Year
  Sex: Male

DRUGS (9)
  1. BEVACIZUMAB [Suspect]
     Indication: RECTAL CANCER METASTATIC
     Dosage: 5MG/KG
     Route: 065
  2. BEVACIZUMAB [Suspect]
     Indication: RECTAL CANCER METASTATIC
     Dosage: 5 MG/KG
     Route: 065
  3. BEVACIZUMAB [Suspect]
     Indication: RECTAL CANCER METASTATIC
     Dosage: 10 MG/KG
     Route: 065
  4. CALCIUM LEVOFOLINATE [Suspect]
     Indication: RECTAL CANCER METASTATIC
     Dosage: 200 MG/M2/2H
     Route: 065
  5. CALCIUM LEVOFOLINATE [Suspect]
     Indication: RECTAL CANCER METASTATIC
     Dosage: 200 MG/M2/2H
  6. FLUOROURACIL [Suspect]
     Indication: RECTAL CANCER METASTATIC
     Dosage: 400 MG/M2 BOLUS; 2400 MG/M2/46H
     Route: 065
  7. FLUOROURACIL [Suspect]
     Indication: RECTAL CANCER METASTATIC
     Dosage: 400 MG/M2 BOLUS, 2400 MG/M2/46H
     Route: 065
  8. IRINOTECAN [Suspect]
     Indication: RECTAL CANCER METASTATIC
     Dosage: 150 MG/M2/1.5H
     Route: 065
  9. OXALIPLATIN [Concomitant]
     Indication: RECTAL CANCER METASTATIC
     Dosage: 85 MG/M2/2H
     Route: 065

REACTIONS (2)
  - Hepatic failure [Fatal]
  - Hepatitis B [Unknown]
